FAERS Safety Report 6662303-X (Version None)
Quarter: 2010Q1

REPORT INFORMATION
  Report Type: 
  Country: None (occurrence: None)
  Receive Date: 20100331
  Receipt Date: 20100324
  Transmission Date: 20100710
  Serious: Yes (Other)
  Sender: FDA-Public Use
  Company Number: PHHY2010JP18318

PATIENT
  Sex: Male

DRUGS (9)
  1. ZOLEDRONATE T29581+ [Suspect]
     Indication: METASTASES TO BONE
     Dosage: 4 MG DILUTED TO 100 ML, EVERY 4 WEEKS
     Route: 042
     Dates: start: 20070208, end: 20081104
  2. DECADRON [Suspect]
     Dosage: 0.5 MG, UNK
     Route: 048
     Dates: start: 20070208, end: 20080205
  3. DECADRON [Suspect]
     Dosage: 1 MG, UNK
     Route: 048
     Dates: start: 20080206, end: 20090519
  4. GLYSENNID [Concomitant]
     Dosage: 2 DF, UNK
     Route: 048
     Dates: start: 20060606, end: 20090519
  5. ESTRACYT [Concomitant]
     Dosage: 4 DF, UNK
     Route: 048
     Dates: start: 20060314, end: 20080107
  6. RAMELTEON [Concomitant]
     Dosage: 0.1 MG, UNK
     Route: 048
     Dates: start: 20060314, end: 20090519
  7. YAKUBAN [Concomitant]
     Dosage: UNK
     Dates: start: 20021015, end: 20090519
  8. CYCLOPHOSPHAMIDE [Concomitant]
     Dosage: 2 DF, UNK
     Route: 048
     Dates: start: 20080108, end: 20090519
  9. UFT [Concomitant]
     Dosage: 4 DF, UNK
     Route: 048
     Dates: start: 20080108, end: 20090519

REACTIONS (4)
  - BLOOD CREATININE INCREASED [None]
  - BLOOD UREA INCREASED [None]
  - HYPOCALCAEMIA [None]
  - OSTEOMYELITIS [None]
